FAERS Safety Report 23134489 (Version 4)
Quarter: 2024Q1

REPORT INFORMATION
  Report Type: Spontaneous
  Country: US (occurrence: US)
  Receive Date: 20231101
  Receipt Date: 20240109
  Transmission Date: 20240410
  Serious: No
  Sender: FDA-Public Use
  Company Number: US-BRISTOL-MYERS SQUIBB COMPANY-2023-154272

PATIENT
  Age: 48 Year
  Sex: Male
  Weight: 75.3 kg

DRUGS (1)
  1. LENALIDOMIDE [Suspect]
     Active Substance: LENALIDOMIDE
     Indication: Plasma cell myeloma
     Dosage: FREQ -DAILY X 28 DAY CYCLE
     Route: 048
     Dates: start: 20230610

REACTIONS (5)
  - Fatigue [Not Recovered/Not Resolved]
  - Constipation [Not Recovered/Not Resolved]
  - Product dose omission in error [Unknown]
  - Sinusitis [Unknown]
  - Treatment noncompliance [Unknown]
